FAERS Safety Report 23824164 (Version 2)
Quarter: 2025Q2

REPORT INFORMATION
  Report Type: Spontaneous
  Country: US (occurrence: US)
  Receive Date: 20240507
  Receipt Date: 20250515
  Transmission Date: 20250717
  Serious: No
  Sender: UCB
  Company Number: US-UCBSA-2023052693

PATIENT
  Age: 65 Year
  Sex: Female

DRUGS (3)
  1. CIMZIA [Suspect]
     Active Substance: CERTOLIZUMAB PEGOL
     Indication: Rheumatoid arthritis
     Dosage: 400 MILLIGRAM, EV 4 WEEKS
     Route: 058
     Dates: start: 202201
  2. CIMZIA [Suspect]
     Active Substance: CERTOLIZUMAB PEGOL
     Indication: Thrombocytopenia
  3. CIMZIA [Suspect]
     Active Substance: CERTOLIZUMAB PEGOL
     Indication: Off label use

REACTIONS (8)
  - Pain in extremity [Unknown]
  - Arthralgia [Unknown]
  - Decreased appetite [Unknown]
  - Abdominal pain lower [Unknown]
  - Renal disorder [Unknown]
  - Diarrhoea [Unknown]
  - Off label use [Unknown]
  - Erythema [Unknown]

NARRATIVE: CASE EVENT DATE: 20220101
